FAERS Safety Report 11506266 (Version 1)
Quarter: 2015Q3

REPORT INFORMATION
  Report Type: Spontaneous
  Country: US (occurrence: US)
  Receive Date: 20150915
  Receipt Date: 20150915
  Transmission Date: 20151125
  Serious: No
  Sender: FDA-Public Use
  Company Number: US-ROCHE-724412

PATIENT
  Sex: Female

DRUGS (2)
  1. PEGASYS [Suspect]
     Active Substance: PEGINTERFERON ALFA-2A
     Indication: HEPATITIS C
     Route: 065
  2. RIBAVIRIN. [Suspect]
     Active Substance: RIBAVIRIN
     Indication: HEPATITIS C
     Dosage: FORM PILLS
     Route: 065

REACTIONS (6)
  - Anxiety [Unknown]
  - Pain in extremity [Unknown]
  - Irritability [Unknown]
  - Influenza like illness [Unknown]
  - Drug screen positive [Unknown]
  - Insomnia [Not Recovered/Not Resolved]
